FAERS Safety Report 8919828 (Version 4)
Quarter: 2013Q2

REPORT INFORMATION
  Report Type: Spontaneous
  Country: US (occurrence: US)
  Receive Date: 20121121
  Receipt Date: 20130503
  Transmission Date: 20140414
  Serious: Yes (Hospitalization)
  Sender: FDA-Public Use
  Company Number: US-BAYER-2012-120017

PATIENT
  Age: 22 Year
  Sex: Female
  Weight: 52.15 kg

DRUGS (4)
  1. YAZ [Suspect]
     Dosage: UNK
     Dates: start: 20090101, end: 200907
  2. ZYRTEK [Concomitant]
  3. ADDERALL [Concomitant]
     Dosage: 30 MG, BID
     Route: 048
  4. FLAGYL [Concomitant]
     Dosage: 500 MG, BID

REACTIONS (9)
  - Deep vein thrombosis [None]
  - Convulsion [None]
  - Pain [None]
  - Injury [None]
  - General physical health deterioration [None]
  - Anxiety [None]
  - Pain [None]
  - Anhedonia [None]
  - Emotional distress [None]
